FAERS Safety Report 9508911 (Version 1)
Quarter: 2013Q3

REPORT INFORMATION
  Report Type: Spontaneous
  Country: US (occurrence: US)
  Receive Date: 20130909
  Receipt Date: 20130909
  Transmission Date: 20140515
  Serious: No
  Sender: FDA-Public Use
  Company Number: US-BRISTOL-MYERS SQUIBB COMPANY-17427949

PATIENT
  Age: 7 Year
  Sex: Male

DRUGS (4)
  1. ABILIFY ORAL SOLUTION [Suspect]
     Indication: AUTISM
     Route: 048
  2. CLONIDINE [Concomitant]
  3. OMEPRAZOLE [Concomitant]
  4. ERYPED [Concomitant]

REACTIONS (1)
  - Weight increased [Unknown]
